FAERS Safety Report 6628424-2 (Version None)
Quarter: 2010Q1

REPORT INFORMATION
  Report Type: 
  Country: None (occurrence: None)
  Receive Date: 20100311
  Receipt Date: 20100227
  Transmission Date: 20100710
  Serious: Yes (Other)
  Sender: FDA-Public Use
  Company Number: AT-PFIZER INC-2010018754

PATIENT
  Age: 27 Year
  Sex: Female
  Weight: 63 kg

DRUGS (3)
  1. CHAMPIX [Suspect]
     Indication: SMOKING CESSATION THERAPY
     Dosage: 0.5 MG, 2X/DAY
     Route: 048
     Dates: start: 20100115, end: 20100215
  2. THYREX [Concomitant]
     Dosage: 50 UG, 1X/DAY
     Route: 048
  3. NORDETTE-28 [Concomitant]

REACTIONS (7)
  - ABDOMINAL PAIN UPPER [None]
  - ABNORMAL DREAMS [None]
  - DISTURBANCE IN ATTENTION [None]
  - DYSARTHRIA [None]
  - FATIGUE [None]
  - HYPOAESTHESIA ORAL [None]
  - SOMNOLENCE [None]
